FAERS Safety Report 9981966 (Version 2)
Quarter: 2014Q1

REPORT INFORMATION
  Report Type: Report from Study
  Country: US (occurrence: US)
  Receive Date: 20140307
  Receipt Date: 20140307
  Transmission Date: 20141002
  Serious: No
  Sender: FDA-Public Use
  Company Number: US-ABBVIE-13P-163-1173368-00

PATIENT
  Age: 68 Year
  Sex: Male
  Weight: 83.99 kg

DRUGS (13)
  1. HUMIRA [Suspect]
     Indication: PSORIASIS
     Dates: start: 20130531, end: 20130531
  2. HUMIRA [Suspect]
     Indication: PSORIASIS
     Dates: start: 20130607, end: 20131122
  3. HUMIRA [Suspect]
  4. LISINOPRIL [Concomitant]
     Indication: HYPERTENSION
  5. OMEPRAZOLE [Concomitant]
     Indication: GASTROOESOPHAGEAL REFLUX DISEASE
  6. LOVASTATIN [Concomitant]
     Indication: BLOOD CHOLESTEROL INCREASED
  7. IMIPRAMINE [Concomitant]
     Indication: ANXIETY
  8. MULTIVITAMIN [Concomitant]
     Indication: VITAMIN SUPPLEMENTATION
  9. METFORMIN HCL [Concomitant]
     Indication: DIABETES MELLITUS
  10. VITAMIN D3 [Concomitant]
     Indication: VITAMIN SUPPLEMENTATION
  11. VITAMIN B12 [Concomitant]
     Indication: VITAMIN SUPPLEMENTATION
  12. STOOL SOFTENER [Concomitant]
     Indication: CONSTIPATION
  13. DOCUSATE SODIUM [Concomitant]
     Indication: CONSTIPATION

REACTIONS (7)
  - Testicular pain [Not Recovered/Not Resolved]
  - Testicular pain [Recovered/Resolved]
  - Epididymitis [Not Recovered/Not Resolved]
  - Pelvic pain [Recovered/Resolved]
  - Pelvic pain [Not Recovered/Not Resolved]
  - Testicular pain [Not Recovered/Not Resolved]
  - Prostate infection [Not Recovered/Not Resolved]
